FAERS Safety Report 5456656-8 (Version None)
Quarter: 2007Q3

REPORT INFORMATION
  Report Type: 
  Country: None (occurrence: None)
  Receive Date: 20070918
  Receipt Date: 20070430
  Transmission Date: 20080115
  Serious: Yes (Other)
  Sender: FDA-Public Use
  Company Number: US-ASTRAZENECA-2006UW25505

PATIENT
  Sex: Female
  Weight: 213.6 kg

DRUGS (6)
  1. SEROQUEL [Suspect]
     Route: 048
     Dates: start: 19970101, end: 20060101
  2. ABILIFY [Concomitant]
     Dates: start: 19960208
  3. GEODON [Concomitant]
     Dates: start: 19990301
  4. HALDOL [Concomitant]
     Dates: start: 19990301
  5. RISPERDAL [Concomitant]
     Dates: start: 20000408
  6. ZYPREXA [Concomitant]
     Dates: start: 20040501

REACTIONS (3)
  - DIABETES MELLITUS [None]
  - DIABETIC COMA [None]
  - DIABETIC KETOACIDOSIS [None]
